FAERS Safety Report 7772254-5 (Version None)
Quarter: 2011Q3

REPORT INFORMATION
  Report Type: 
  Country: None (occurrence: None)
  Receive Date: 20110922
  Receipt Date: 20100927
  Transmission Date: 20111222
  Serious: No
  Sender: FDA-Public Use
  Company Number: US-ASTRAZENECA-2010SE45331

PATIENT
  Sex: Female
  Weight: 74.8 kg

DRUGS (9)
  1. NEXIUM [Concomitant]
  2. HYDROCHLOROTHIAZIDE [Concomitant]
  3. XANAX [Concomitant]
  4. SEROQUEL XR [Suspect]
     Route: 048
     Dates: start: 20100901
  5. ADVIL LIQUI-GELS [Concomitant]
  6. HYDROCODONE [Concomitant]
  7. TENORMIN [Concomitant]
  8. SEROQUEL XR [Suspect]
     Indication: DEPRESSION
     Route: 048
     Dates: start: 20100301, end: 20100901
  9. FISH OIL [Concomitant]

REACTIONS (3)
  - ASTHENIA [None]
  - MUSCULAR WEAKNESS [None]
  - MUSCLE CONTRACTIONS INVOLUNTARY [None]
